FAERS Safety Report 12619365 (Version 1)
Quarter: 2016Q3

REPORT INFORMATION
  Report Type: Report from Study
  Country: CO (occurrence: CO)
  Receive Date: 20160803
  Receipt Date: 20160803
  Transmission Date: 20161109
  Serious: Yes (Hospitalization)
  Sender: FDA-Public Use
  Company Number: CO-ABBVIE-16K-036-1690609-00

PATIENT
  Age: 30 Year
  Sex: Male
  Weight: 68 kg

DRUGS (1)
  1. HUMIRA [Suspect]
     Active Substance: ADALIMUMAB
     Indication: COLITIS ULCERATIVE
     Route: 058
     Dates: start: 20140922, end: 20160525

REACTIONS (8)
  - Purulence [Recovering/Resolving]
  - Pyrexia [Recovering/Resolving]
  - Anal abscess [Recovering/Resolving]
  - Anal fistula [Recovering/Resolving]
  - Proctalgia [Not Recovered/Not Resolved]
  - Chills [Recovering/Resolving]
  - Swelling [Recovering/Resolving]
  - Anal infection [Recovering/Resolving]

NARRATIVE: CASE EVENT DATE: 20160426
